FAERS Safety Report 18766585 (Version 2)
Quarter: 2021Q1

REPORT INFORMATION
  Report Type: Report from Study
  Country: DE (occurrence: DE)
  Receive Date: 20210121
  Receipt Date: 20210217
  Transmission Date: 20210419
  Serious: Yes (Death)
  Sender: FDA-Public Use
  Company Number: DE-SUN PHARMACEUTICAL INDUSTRIES LTD-2021RR-276635

PATIENT
  Age: 77 Year
  Sex: Female

DRUGS (8)
  1. OPIPRAMOL NEUREXPHARM 50 [Concomitant]
     Indication: PRE-EXISTING DISEASE
     Dosage: 50 MILLIGRAM, DAILY TWICE
     Route: 048
  2. EBRANTIL 90 [Concomitant]
     Indication: PRE-EXISTING DISEASE
     Dosage: 90 MILLIGRAM, DAILY
     Route: 048
  3. RAMIPRIL 1A PHARMA 2.5 [Concomitant]
     Indication: PRE-EXISTING DISEASE
     Dosage: 2.5 MILLIGRAM, TID
     Route: 048
  4. TROMCARDIN COMPLEX [Concomitant]
     Active Substance: DIETARY SUPPLEMENT
     Indication: PRE-EXISTING DISEASE
     Dosage: DOSE AS REQUIRED, DAILY
     Route: 065
  5. TURFA GAMMA [Concomitant]
     Indication: PROPHYLAXIS
     Dosage: DOSE AS REQUIRED, DAILY
     Route: 048
  6. ODOMZO [Suspect]
     Active Substance: SONIDEGIB
     Indication: BASAL CELL CARCINOMA
     Dosage: 200 MILLIGRAM, DAILY
     Route: 048
     Dates: start: 20200116
  7. METOPROLOL SUCCINAT 47.5 [Concomitant]
     Indication: PRE-EXISTING DISEASE
     Dosage: 47.5 MILLIGRAM, BID
     Route: 048
  8. L?THYROXIN BETA 25 [Concomitant]
     Indication: PRE-EXISTING DISEASE
     Dosage: 25 MICROGRAM, DAILY
     Route: 048

REACTIONS (1)
  - Cardiac failure [Fatal]

NARRATIVE: CASE EVENT DATE: 20201214
